FAERS Safety Report 16562330 (Version 3)
Quarter: 2019Q3

REPORT INFORMATION
  Report Type: Spontaneous
  Country: FR (occurrence: FR)
  Receive Date: 20190711
  Receipt Date: 20190830
  Transmission Date: 20191004
  Serious: Yes (Hospitalization, Other)
  Sender: FDA-Public Use
  Company Number: FR-JNJFOC-20190700992

PATIENT
  Age: 71 Year
  Sex: Male
  Weight: 92 kg

DRUGS (12)
  1. ENANTONE LP [Suspect]
     Active Substance: LEUPROLIDE ACETATE
     Route: 058
     Dates: start: 20160405
  2. DITROPAN [Suspect]
     Active Substance: OXYBUTYNIN CHLORIDE
     Route: 048
     Dates: end: 20160330
  3. DITROPAN [Suspect]
     Active Substance: OXYBUTYNIN CHLORIDE
     Indication: HYPERTONIC BLADDER
     Dosage: .5 DF,BID
     Route: 048
     Dates: end: 20160330
  4. METFORMIN HYDROCHLORIDE. [Suspect]
     Active Substance: METFORMIN HYDROCHLORIDE
     Indication: DIABETES MELLITUS
     Route: 048
     Dates: start: 20160405, end: 20160408
  5. SUTENT [Suspect]
     Active Substance: SUNITINIB MALATE
     Indication: RENAL CANCER
     Dosage: 50 MG/J, 4 SEMAINES SUR 6
     Route: 048
     Dates: start: 20160114, end: 20160330
  6. PARACETAMOL [Suspect]
     Active Substance: ACETAMINOPHEN
     Indication: PRODUCT USED FOR UNKNOWN INDICATION
     Route: 048
     Dates: end: 20160330
  7. DITROPAN [Suspect]
     Active Substance: OXYBUTYNIN CHLORIDE
     Route: 048
     Dates: end: 20160330
  8. METFORMIN HYDROCHLORIDE. [Suspect]
     Active Substance: METFORMIN HYDROCHLORIDE
     Route: 048
     Dates: end: 20160330
  9. COAPROVEL [Suspect]
     Active Substance: HYDROCHLOROTHIAZIDE\IRBESARTAN
     Indication: HYPERTENSION
     Dosage: 1 DF,QD
     Route: 048
     Dates: end: 20160330
  10. DITROPAN [Suspect]
     Active Substance: OXYBUTYNIN CHLORIDE
     Indication: HYPERTONIC BLADDER
     Route: 048
     Dates: end: 20160330
  11. ENANTONE LP [Suspect]
     Active Substance: LEUPROLIDE ACETATE
     Indication: PROSTATE CANCER
     Route: 058
     Dates: start: 20160330, end: 2016
  12. LEUPRORELIN ACETATE [Suspect]
     Active Substance: LEUPROLIDE ACETATE

REACTIONS (1)
  - Hepatitis acute [Recovering/Resolving]

NARRATIVE: CASE EVENT DATE: 20160401
